FAERS Safety Report 14682188 (Version 1)
Quarter: 2018Q1

REPORT INFORMATION
  Report Type: Spontaneous
  Country: US (occurrence: US)
  Receive Date: 20180326
  Receipt Date: 20180326
  Transmission Date: 20180509
  Serious: Yes (Other)
  Sender: FDA-Public Use
  Company Number: US-ALLERGAN-1815379US

PATIENT
  Age: 38 Year
  Sex: Male

DRUGS (1)
  1. VIBERZI [Suspect]
     Active Substance: ELUXADOLINE
     Indication: IRRITABLE BOWEL SYNDROME
     Dosage: UNK
     Route: 065
     Dates: start: 201710

REACTIONS (3)
  - Ammonia increased [Recovering/Resolving]
  - Hepatic encephalopathy [Unknown]
  - Pain [Unknown]

NARRATIVE: CASE EVENT DATE: 20171228
